FAERS Safety Report 18657182 (Version 2)
Quarter: 2023Q2

REPORT INFORMATION
  Report Type: Report from Study
  Country: KR (occurrence: KR)
  Receive Date: 20201223
  Receipt Date: 20230613
  Transmission Date: 20230721
  Serious: Yes (Other)
  Sender: FDA-Public Use
  Company Number: KR-ABBVIE-20K-090-3703342-00

PATIENT
  Age: 64 Year
  Sex: Male

DRUGS (3)
  1. HUMIRA [Suspect]
     Active Substance: ADALIMUMAB
     Indication: Ankylosing spondylitis
     Dosage: FORM STRENGTH 40MG
     Route: 058
  2. CEFTRIAXONE [Concomitant]
     Active Substance: CEFTRIAXONE
     Indication: Product used for unknown indication
  3. METRONIDAZOLE [Concomitant]
     Active Substance: METRONIDAZOLE
     Indication: Product used for unknown indication

REACTIONS (7)
  - Spinal cord injury cervical [Not Recovered/Not Resolved]
  - Purulent discharge [Unknown]
  - Lip and/or oral cavity cancer [Unknown]
  - Postoperative abscess [Unknown]
  - Skin ulcer [Unknown]
  - Oral discomfort [Unknown]
  - Skin infection [Unknown]

NARRATIVE: CASE EVENT DATE: 20210828
